FAERS Safety Report 15451935 (Version 1)
Quarter: 2018Q3

REPORT INFORMATION
  Report Type: Spontaneous
  Country: US (occurrence: US)
  Receive Date: 20180927
  Receipt Date: 20180927
  Transmission Date: 20181010
  Serious: Yes (Other)
  Sender: FDA-Public Use
  Company Number: None

PATIENT
  Age: 35 Year
  Sex: Male

DRUGS (2)
  1. ORITAVANCIN. [Suspect]
     Active Substance: ORITAVANCIN
     Dosage: ?          OTHER FREQUENCY:TWO DOSES, Q7 DAYS;?
     Route: 042
     Dates: start: 20180821, end: 20180828
  2. ORITAVANCIN. [Suspect]
     Active Substance: ORITAVANCIN
     Indication: OSTEOMYELITIS VIRAL
     Dosage: ?          OTHER FREQUENCY:ONCE;?
     Route: 042
     Dates: start: 20180814, end: 20180814

REACTIONS (1)
  - Thrombocytopenia [None]

NARRATIVE: CASE EVENT DATE: 20180827
